FAERS Safety Report 24308817 (Version 1)
Quarter: 2024Q3

REPORT INFORMATION
  Report Type: Spontaneous
  Country: US (occurrence: None)
  Receive Date: 20240911
  Receipt Date: 20240911
  Transmission Date: 20241016
  Serious: Yes (Hospitalization)
  Sender: Public
  Company Number: None

PATIENT
  Age: 81 Year
  Sex: Female
  Weight: 52.5 kg

DRUGS (1)
  1. VERZENIO [Suspect]
     Active Substance: ABEMACICLIB
     Indication: Breast cancer
     Dosage: FREQUENCY : TWICE A DAY;?
     Route: 048
     Dates: start: 20240805, end: 20240905

REACTIONS (6)
  - Brain natriuretic peptide increased [None]
  - Troponin increased [None]
  - Tachycardia [None]
  - Right ventricular failure [None]
  - Left ventricular dysfunction [None]
  - Thrombocytopenia [None]

NARRATIVE: CASE EVENT DATE: 20240904
